FAERS Safety Report 8495297-5 (Version None)
Quarter: 2012Q3

REPORT INFORMATION
  Report Type: 
  Country: None (occurrence: None)
  Receive Date: 20120709
  Receipt Date: 20120703
  Transmission Date: 20120928
  Serious: Yes (Hospitalization, Other)
  Sender: FDA-Public Use
  Company Number: US-PFIZER INC-2012159673

PATIENT
  Sex: Female
  Weight: 65.76 kg

DRUGS (17)
  1. LEVOTHYROXINE [Concomitant]
     Dosage: UNK
  2. VITAMIN D [Concomitant]
     Dosage: UNK
  3. FERROUS SULFATE [Concomitant]
     Dosage: UNK
  4. NORCO [Suspect]
     Indication: PAIN
     Dosage: UNK, AS NEEDED
     Route: 048
     Dates: start: 20120525, end: 20120531
  5. OMEPRAZOLE [Concomitant]
     Dosage: UNK
  6. DIGOXIN [Concomitant]
     Dosage: UNK
  7. REVATIO [Suspect]
     Indication: PULMONARY OEDEMA
  8. ZETIA [Concomitant]
     Dosage: UNK
  9. WARFARIN [Concomitant]
     Dosage: UNK
  10. PRAVACHOL [Concomitant]
     Dosage: UNK
  11. REVATIO [Suspect]
     Indication: PULMONARY HYPERTENSION
     Dosage: 20 MG, 3X/DAY
     Route: 048
     Dates: start: 20110601
  12. INSULIN [Concomitant]
     Indication: DIABETES MELLITUS
     Dosage: UNK
  13. SPIRONOLACTONE [Concomitant]
     Dosage: UNK
  14. ACETAMINOPHEN [Concomitant]
     Dosage: UNK
  15. NOVOLOG [Concomitant]
     Indication: DIABETES MELLITUS
     Dosage: UNK
  16. FUROSEMIDE [Concomitant]
     Dosage: UNK
  17. COREG [Concomitant]
     Indication: CARDIAC FAILURE CONGESTIVE
     Dosage: UNK

REACTIONS (6)
  - HIP FRACTURE [None]
  - PAIN [None]
  - MALAISE [None]
  - NAUSEA [None]
  - HYPERSENSITIVITY [None]
  - FALL [None]
